FAERS Safety Report 5171745-3 (Version None)
Quarter: 2006Q4

REPORT INFORMATION
  Report Type: 
  Country: None (occurrence: None)
  Receive Date: 20061205
  Receipt Date: 20061116
  Transmission Date: 20070319
  Serious: Yes (Other)
  Sender: FDA-Public Use
  Company Number: US-2006-031837

PATIENT
  Age: 35 Year
  Sex: Female
  Weight: 59 kg

DRUGS (18)
  1. BETASERON [Suspect]
     Indication: RELAPSING-REMITTING MULTIPLE SCLEROSIS
     Dosage: 8 MIU, EVERY 2D, SUBCUTANEOUS
     Route: 058
     Dates: start: 20051017
  2. SOLU-MEDROL [Suspect]
     Indication: RELAPSING-REMITTING MULTIPLE SCLEROSIS
     Dosage: INTRAVENOUS
     Route: 042
     Dates: start: 20060112, end: 20060114
  3. VESACARE [Concomitant]
  4. ADDERALL XR (AMFETAMINE SULFATE, DEXAMFETAMINE SACCHARATE, DEXAMFETAMI [Concomitant]
  5. ADDERALL (DEXAMFETAMINE SACCHARATE, DEXAMFETAMINE SULFATE, AMFETAMINE [Concomitant]
  6. CELEXA [Concomitant]
  7. BACLOFEN [Concomitant]
  8. TIZANIDINE HCL [Concomitant]
  9. AMANTADINE HCL [Concomitant]
  10. TRAMADOL HCL [Concomitant]
  11. ACYCLOVIR (ACICLOVIR) CAPSULE [Concomitant]
  12. PROPRANOLOL HYDROCHLORIDE (PROPRANOLOL HYDROCHLORIDE) TABLET [Concomitant]
  13. ZONEGRAN [Concomitant]
  14. DIAZEPAM [Concomitant]
  15. TYLENOL [Concomitant]
  16. LEVOTHYROXINE SODIUM [Concomitant]
  17. CYTOMEL [Concomitant]
  18. VITAMIN A [Concomitant]

REACTIONS (11)
  - ARTHRALGIA [None]
  - BONE MARROW DISORDER [None]
  - CONDITION AGGRAVATED [None]
  - GENERALISED ERYTHEMA [None]
  - HEADACHE [None]
  - HYPERSENSITIVITY [None]
  - LIVEDO RETICULARIS [None]
  - MULTIPLE SCLEROSIS [None]
  - PAIN [None]
  - PARATHYROID DISORDER [None]
  - SWELLING [None]
